FAERS Safety Report 7772188-6 (Version None)
Quarter: 2011Q3

REPORT INFORMATION
  Report Type: 
  Country: None (occurrence: None)
  Receive Date: 20110922
  Receipt Date: 20110629
  Transmission Date: 20111222
  Serious: No
  Sender: FDA-Public Use
  Company Number: US-ASTRAZENECA-2011SE38971

PATIENT
  Age: 68 Year
  Sex: Female
  Weight: 67.6 kg

DRUGS (7)
  1. ATIVAN [Concomitant]
  2. ATENOLOL [Concomitant]
  3. CHOLESTEROL MED [Concomitant]
  4. KLLONIDINE [Concomitant]
  5. SEROQUEL XR [Suspect]
     Indication: ANXIETY
     Dosage: AT NIGHT
     Route: 048
     Dates: start: 20110101, end: 20110601
  6. SEROQUEL XR [Suspect]
     Indication: DEPRESSION
     Dosage: AT NIGHT
     Route: 048
     Dates: start: 20110101, end: 20110601
  7. GABAPENTIN [Concomitant]

REACTIONS (3)
  - NERVOUSNESS [None]
  - MALAISE [None]
  - DRUG DOSE OMISSION [None]
